FAERS Safety Report 11533085 (Version 1)
Quarter: 2015Q3

REPORT INFORMATION
  Report Type: Spontaneous
  Country: US (occurrence: US)
  Receive Date: 20150921
  Receipt Date: 20150921
  Transmission Date: 20151125
  Serious: Yes (Other)
  Sender: FDA-Public Use
  Company Number: US-BAYER-2015-424208

PATIENT
  Sex: Male

DRUGS (1)
  1. DR. SCHOLLS INGROWN TOENAIL PAIN RELIEVER [Suspect]
     Active Substance: SODIUM SULFIDE
     Indication: INGROWING NAIL
     Dosage: USED TWICE ONLY

REACTIONS (3)
  - Pain in extremity [None]
  - Poor quality sleep [None]
  - Drug ineffective [None]
